FAERS Safety Report 6611179-5 (Version None)
Quarter: 2010Q1

REPORT INFORMATION
  Report Type: 
  Country: None (occurrence: None)
  Receive Date: 20100301
  Receipt Date: 20100301
  Transmission Date: 20100710
  Serious: Yes (Disabling)
  Sender: FDA-Public Use
  Company Number: None

PATIENT
  Age: 73 Year
  Sex: Female
  Weight: 49.4421 kg

DRUGS (1)
  1. ADVAIR DISKUS 250/50 [Suspect]
     Indication: RESPIRATORY DISORDER
     Dosage: 1 PUFF 2X A DAY
     Dates: start: 20100119, end: 20100211

REACTIONS (5)
  - ABDOMINAL DISCOMFORT [None]
  - MUSCLE SPASMS [None]
  - NAUSEA [None]
  - PAIN IN EXTREMITY [None]
  - THROAT IRRITATION [None]
